FAERS Safety Report 5413632-9 (Version None)
Quarter: 2007Q3

REPORT INFORMATION
  Report Type: 
  Country: None (occurrence: None)
  Receive Date: 20070814
  Receipt Date: 20070424
  Transmission Date: 20080115
  Serious: No
  Sender: FDA-Public Use
  Company Number: US-BRISTOL-MYERS SQUIBB COMPANY-13758909

PATIENT
  Age: 70 Year
  Sex: Male
  Weight: 88 kg

DRUGS (6)
  1. GLUCOVANCE [Suspect]
     Route: 048
  2. LISINOPRIL [Concomitant]
  3. LOVASTATIN [Concomitant]
  4. CEPHALEXIN [Concomitant]
     Route: 048
  5. ALBUTEROL [Concomitant]
  6. ASCORBIC ACID [Concomitant]

REACTIONS (1)
  - BLOOD GLUCOSE DECREASED [None]
